FAERS Safety Report 4965902-6 (Version None)
Quarter: 2006Q2

REPORT INFORMATION
  Report Type: 
  Country: None (occurrence: None)
  Receive Date: 20060407
  Receipt Date: 20060329
  Transmission Date: 20061013
  Serious: Yes (Hospitalization)
  Sender: FDA-Public Use
  Company Number: PHBS2006IT04902

PATIENT
  Age: 38 Year
  Sex: Female

DRUGS (2)
  1. LIOMETACEN [Concomitant]
     Indication: PAIN
     Dosage: 25 MG/DAY
     Route: 030
     Dates: start: 20050319
  2. VOLTAREN [Suspect]
     Indication: PAIN
     Dosage: 75 MG/DAY
     Route: 030
     Dates: start: 20060225

REACTIONS (10)
  - ARTHRALGIA [None]
  - BILIRUBIN CONJUGATED INCREASED [None]
  - CHILLS [None]
  - HAEMOLYSIS [None]
  - HYPERBILIRUBINAEMIA [None]
  - LIVER FUNCTION TEST ABNORMAL [None]
  - PYREXIA [None]
  - RASH [None]
  - THROMBOCYTOPENIA [None]
  - TRANSAMINASES INCREASED [None]
